FAERS Safety Report 5297214-8 (Version None)
Quarter: 2007Q2

REPORT INFORMATION
  Report Type: 
  Country: None (occurrence: None)
  Receive Date: 20070416
  Receipt Date: 20070404
  Transmission Date: 20071010
  Serious: Yes (Other)
  Sender: FDA-Public Use
  Company Number: JP-SP-2006-02534

PATIENT
  Age: 58 Year
  Sex: Male

DRUGS (2)
  1. IMMUCYST [Suspect]
     Indication: CARCINOMA IN SITU OF BLADDER
     Route: 043
     Dates: start: 20051104, end: 20051212
  2. IMMUCYST [Suspect]
     Route: 043
     Dates: start: 20051104, end: 20051212

REACTIONS (5)
  - BLADDER TAMPONADE [None]
  - CYSTITIS [None]
  - HAEMATURIA [None]
  - POLLAKIURIA [None]
  - PYREXIA [None]
